FAERS Safety Report 6742229-3 (Version None)
Quarter: 2010Q2

REPORT INFORMATION
  Report Type: 
  Country: None (occurrence: None)
  Receive Date: 20100526
  Receipt Date: 20100511
  Transmission Date: 20101027
  Serious: Yes (Hospitalization)
  Sender: FDA-Public Use
  Company Number: US-EISAI INC.-E2020-06584-SOL-US

PATIENT
  Sex: Female
  Weight: 56 kg

DRUGS (7)
  1. ARICEPT [Suspect]
     Indication: DRUG USE FOR UNKNOWN INDICATION
     Dosage: UNKNOWN
     Route: 048
     Dates: start: 20080120
  2. ACTONEL [Concomitant]
     Route: 048
     Dates: start: 20080301
  3. CELEBREX [Concomitant]
     Dates: start: 20080301
  4. HYDROXYUREA [Concomitant]
     Dates: start: 20080301
  5. LEVOTHYROXINE SODIUM [Concomitant]
     Dates: start: 20080301
  6. MVI WITH FOLIC ACID [Concomitant]
     Dates: start: 20080301
  7. ASPIRIN [Concomitant]
     Dates: start: 20080301

REACTIONS (3)
  - CHOLELITHIASIS [None]
  - PANCREATITIS [None]
  - WOUND DRAINAGE [None]
